FAERS Safety Report 10704354 (Version 2)
Quarter: 2015Q1

REPORT INFORMATION
  Report Type: Spontaneous
  Country: US (occurrence: US)
  Receive Date: 20150112
  Receipt Date: 20150218
  Transmission Date: 20150721
  Serious: Yes (Hospitalization, Other)
  Sender: FDA-Public Use
  Company Number: US-BAYER-2015-002817

PATIENT
  Age: 40 Year
  Sex: Female
  Weight: 81.63 kg

DRUGS (3)
  1. MIRENA [Suspect]
     Active Substance: LEVONORGESTREL
     Indication: CONTRACEPTION
     Dosage: 20 MCG/24HR, CONT
     Route: 015
     Dates: start: 20080924, end: 20100412
  2. LEXAPRO [Concomitant]
     Active Substance: ESCITALOPRAM OXALATE
     Indication: ANXIETY
     Dosage: UNK
     Dates: start: 2007
  3. LEXAPRO [Concomitant]
     Active Substance: ESCITALOPRAM OXALATE
     Indication: DEPRESSION

REACTIONS (18)
  - Device dislocation [None]
  - Psychological trauma [None]
  - Pregnancy with contraceptive device [None]
  - Uterine perforation [None]
  - Drug ineffective [None]
  - Abdominal pain [Not Recovered/Not Resolved]
  - Pelvic pain [None]
  - Abdominal discomfort [Not Recovered/Not Resolved]
  - Emotional distress [None]
  - Scar [None]
  - High risk pregnancy [None]
  - Pelvic discomfort [None]
  - Injury [None]
  - Depression [None]
  - Caesarean section [None]
  - Anxiety [None]
  - Mental disorder [None]
  - Device issue [None]

NARRATIVE: CASE EVENT DATE: 20080924
